FAERS Safety Report 6811309-6 (Version None)
Quarter: 2010Q2

REPORT INFORMATION
  Report Type: 
  Country: None (occurrence: None)
  Receive Date: 20100630
  Receipt Date: 20091130
  Transmission Date: 20101027
  Serious: No
  Sender: FDA-Public Use
  Company Number: US-AMGEN-KDL377232

PATIENT

DRUGS (2)
  1. EPOGEN [Suspect]
     Indication: DIALYSIS
  2. IRON [Concomitant]

REACTIONS (2)
  - DEVICE RELATED INFECTION [None]
  - HAEMOGLOBIN DECREASED [None]
